FAERS Safety Report 8815352 (Version 2)
Quarter: 2013Q4

REPORT INFORMATION
  Report Type: Spontaneous
  Country: CA (occurrence: CA)
  Receive Date: 20120928
  Receipt Date: 20131127
  Transmission Date: 20140711
  Serious: Yes (Death, Other)
  Sender: FDA-Public Use
  Company Number: CA-SPECTRUM PHARMACEUTICALS, INC.-12-Z-CA-00141

PATIENT
  Sex: 0

DRUGS (13)
  1. ZEVALIN [Suspect]
     Indication: FOLLICLE CENTRE LYMPHOMA, FOLLICULAR GRADE I, II, III
     Dosage: UNK, UNKNOWN
     Route: 042
  2. PREDNISONE [Suspect]
     Indication: FOLLICLE CENTRE LYMPHOMA, FOLLICULAR GRADE I, II, III
     Dosage: UNK, UNKNOWN
     Route: 065
  3. FLUDARA /01004602/ [Suspect]
     Indication: FOLLICLE CENTRE LYMPHOMA, FOLLICULAR GRADE I, II, III
     Dosage: 250 MG/M2, UNK
     Route: 065
  4. RITUXAN [Suspect]
     Indication: FOLLICLE CENTRE LYMPHOMA, FOLLICULAR GRADE I, II, III
     Dosage: UNK
     Route: 065
  5. BUSULFAN [Suspect]
     Indication: FOLLICLE CENTRE LYMPHOMA, FOLLICULAR GRADE I, II, III
     Dosage: 12 MG/KG, UNK
     Route: 065
  6. GRANULOCYTE COLONY-STIMULATING FACTOR NOS [Concomitant]
     Indication: FOLLICLE CENTRE LYMPHOMA, FOLLICULAR GRADE I, II, III
     Dosage: UNK
     Route: 065
  7. IFOSFAMIDE [Suspect]
     Indication: FOLLICLE CENTRE LYMPHOMA, FOLLICULAR GRADE I, II, III
     Dosage: UNK
     Route: 065
  8. VINCRISTINE SULFATE [Concomitant]
     Indication: FOLLICLE CENTRE LYMPHOMA, FOLLICULAR GRADE I, II, III
     Dosage: UNK, UNKNOWN
     Route: 065
  9. CARBOPLATIN [Concomitant]
     Indication: FOLLICLE CENTRE LYMPHOMA, FOLLICULAR GRADE I, II, III
     Dosage: UNK, UNKNOWN
     Route: 065
  10. CISPLATIN [Concomitant]
     Indication: FOLLICLE CENTRE LYMPHOMA, FOLLICULAR GRADE I, II, III
     Dosage: UNK, UNKNOWN
     Route: 065
  11. CYCLOPHOSPHAMIDE [Concomitant]
     Indication: FOLLICLE CENTRE LYMPHOMA, FOLLICULAR GRADE I, II, III
     Dosage: 2000 MG/M2, UNK
     Route: 065
  12. DOXORUBICIN HYDROCHLORIDE [Concomitant]
     Indication: FOLLICLE CENTRE LYMPHOMA, FOLLICULAR GRADE I, II, III
     Dosage: UNK, UNKNOWN
     Route: 065
  13. ETOPOSIDE [Concomitant]
     Indication: FOLLICLE CENTRE LYMPHOMA, FOLLICULAR GRADE I, II, III
     Dosage: UNK, UNKNOWN
     Route: 065

REACTIONS (1)
  - Meningitis tuberculous [Fatal]
